FAERS Safety Report 8996584 (Version 2)
Quarter: 2013Q1

REPORT INFORMATION
  Report Type: Spontaneous
  Country: US (occurrence: US)
  Receive Date: 20130104
  Receipt Date: 20130204
  Transmission Date: 20140127
  Serious: No
  Sender: FDA-Public Use
  Company Number: US-PFIZER INC-2012334405

PATIENT
  Age: 78 Year
  Sex: Female
  Weight: 64.4 kg

DRUGS (2)
  1. CELEBREX [Suspect]
     Indication: ARTHRALGIA
     Dosage: 200 MG, 2X/DAY
     Route: 048
     Dates: start: 2012, end: 201211
  2. LIPITOR [Concomitant]
     Dosage: UNK

REACTIONS (1)
  - Gait disturbance [Unknown]
